FAERS Safety Report 12781413 (Version 12)
Quarter: 2020Q3

REPORT INFORMATION
  Report Type: Report from Study
  Country: US (occurrence: US)
  Receive Date: 20160926
  Receipt Date: 20200714
  Transmission Date: 20201102
  Serious: Yes (Hospitalization, Other)
  Sender: FDA-Public Use
  Company Number: US-SA-2016SA175347

PATIENT
  Age: 49 Year
  Sex: Female

DRUGS (1)
  1. ALEMTUZUMAB [Suspect]
     Active Substance: ALEMTUZUMAB
     Indication: MULTIPLE SCLEROSIS
     Dosage: 12 MG,QD
     Route: 041
     Dates: start: 20160801, end: 20160805

REACTIONS (16)
  - Mobility decreased [Recovered/Resolved]
  - Dry skin [Not Recovered/Not Resolved]
  - Unevaluable event [Unknown]
  - Decubitus ulcer [Recovering/Resolving]
  - General physical health deterioration [Not Recovered/Not Resolved]
  - Seizure [Recovered/Resolved]
  - Incontinence [Not Recovered/Not Resolved]
  - Condition aggravated [Not Recovered/Not Resolved]
  - Magnetic resonance imaging [Unknown]
  - Blood cholesterol increased [Recovered/Resolved]
  - Drug monitoring procedure not performed [Not Recovered/Not Resolved]
  - Dementia [Unknown]
  - Poor venous access [Not Recovered/Not Resolved]
  - Contusion [Not Recovered/Not Resolved]
  - Erythema [Not Recovered/Not Resolved]
  - Cerebral infarction [Unknown]

NARRATIVE: CASE EVENT DATE: 201609
